FAERS Safety Report 9394988 (Version 2)
Quarter: 2013Q3

REPORT INFORMATION
  Report Type: Spontaneous
  Country: BR (occurrence: BR)
  Receive Date: 20130711
  Receipt Date: 20130801
  Transmission Date: 20140515
  Serious: Yes (Other)
  Sender: FDA-Public Use
  Company Number: BR-PFIZER INC-2013197665

PATIENT
  Age: 48 Year
  Sex: Female

DRUGS (3)
  1. LYRICA [Suspect]
     Indication: INTERVERTEBRAL DISC PROTRUSION
     Dosage: 25 MG, 3X/DAY (EVERY 8 HOURS)
     Route: 048
     Dates: start: 201305, end: 2013
  2. LYRICA [Suspect]
     Indication: SPINAL COLUMN INJURY
  3. AMITRIL [Concomitant]
     Indication: DEPRESSION
     Dosage: UNK
     Dates: start: 201303

REACTIONS (6)
  - Off label use [Recovered/Resolved]
  - Throat tightness [Recovering/Resolving]
  - Swelling face [Recovering/Resolving]
  - Oedema mouth [Recovering/Resolving]
  - Intentional drug misuse [Unknown]
  - Neck pain [Recovering/Resolving]
